FAERS Safety Report 4761427-1 (Version None)
Quarter: 2005Q3

REPORT INFORMATION
  Report Type: 
  Country: None (occurrence: None)
  Receive Date: 20050901
  Receipt Date: 20050901
  Transmission Date: 20060218
  Serious: Yes (Life-Threatening)
  Sender: FDA-Public Use
  Company Number: None

PATIENT
  Age: 75 Year
  Sex: Male
  Weight: 52.6173 kg

DRUGS (7)
  1. FLEETS PHOSPHO 45 ML BOTTLE SODA - FLEET [Suspect]
     Indication: COLONOSCOPY
     Dosage: 45 ML 3 DOSES PO
     Route: 048
     Dates: start: 20050714, end: 20050715
  2. DESYREL [Concomitant]
  3. KLONOPIN [Concomitant]
  4. XANAX [Concomitant]
  5. QUESTRAN [Concomitant]
  6. LASIX [Concomitant]
  7. POTASSIUM CHLORIDE [Concomitant]

REACTIONS (4)
  - BLOOD CALCIUM DECREASED [None]
  - BLOOD PHOSPHORUS INCREASED [None]
  - DIALYSIS [None]
  - RENAL FAILURE ACUTE [None]
